FAERS Safety Report 6003492-X (Version None)
Quarter: 2008Q4

REPORT INFORMATION
  Report Type: 
  Country: None (occurrence: None)
  Receive Date: 20081216
  Receipt Date: 20081211
  Transmission Date: 20090506
  Serious: Yes (Other)
  Sender: FDA-Public Use
  Company Number: FR-BRISTOL-MYERS SQUIBB COMPANY-14441455

PATIENT
  Age: 52 Year
  Sex: Male

DRUGS (17)
  1. PRAVASTATIN SODIUM [Suspect]
  2. CYAMEMAZINE [Interacting]
     Indication: GENERALISED ANXIETY DISORDER
  3. CYAMEMAZINE [Interacting]
     Indication: PANIC ATTACK
  4. RISPERIDONE [Interacting]
     Dosage: INITIATED AT A DOSE OF 2MG/DAY INCREASED TO 4MG/DAY
  5. ACENOCOUMAROL [Concomitant]
  6. EPLERENONE [Concomitant]
  7. CANDESARTAN [Concomitant]
  8. POTASSIUM CHLORIDE [Concomitant]
  9. FUROSEMIDE [Concomitant]
  10. LYSINE ACETYLSALICYLATE [Concomitant]
  11. BISOPROLOL FUMARATE [Concomitant]
  12. ACETAMINOPHEN [Concomitant]
  13. MACROGOL [Concomitant]
  14. TRAMADOL HCL [Concomitant]
  15. OMEPRAZOLE [Concomitant]
  16. MIRTAZAPINE [Concomitant]
  17. BROMAZEPAM [Concomitant]

REACTIONS (2)
  - DRUG INTERACTION [None]
  - MYALGIA [None]
